FAERS Safety Report 8066375-X (Version None)
Quarter: 2012Q1

REPORT INFORMATION
  Report Type: 
  Country: None (occurrence: None)
  Receive Date: 20120117
  Receipt Date: 20120105
  Transmission Date: 20120608
  Serious: Yes (Hospitalization)
  Sender: FDA-Public Use
  Company Number: 1155915

PATIENT
  Age: 88 Year
  Sex: Female

DRUGS (9)
  1. (ADCAL D3) [Concomitant]
  2. ASPIRIN [Concomitant]
  3. SIMVASTATIN [Concomitant]
  4. AMLODIPINE [Concomitant]
  5. (DOCUSATE SODIUM) [Concomitant]
  6. LANSOPRAZOLE [Concomitant]
  7. ACETAMINOPHEN [Concomitant]
  8. GENTAMICIN SULFATE [Suspect]
     Dosage: 120 MG MILLIGRAM(S), INTRAMUSCULAR
     Route: 030
     Dates: start: 20110506
  9. CITALOPRAM HYDROBROMIDE [Concomitant]

REACTIONS (1)
  - ERYTHEMA MULTIFORME [None]
